FAERS Safety Report 7240059-X (Version None)
Quarter: 2011Q1

REPORT INFORMATION
  Report Type: 
  Country: None (occurrence: None)
  Receive Date: 20110124
  Receipt Date: 20110114
  Transmission Date: 20110831
  Serious: No
  Sender: FDA-Public Use
  Company Number: US-BIOGENIDEC-2011BI001777

PATIENT
  Age: 54 Year
  Sex: Female

DRUGS (1)
  1. AVONEX [Suspect]
     Indication: MULTIPLE SCLEROSIS
     Route: 030
     Dates: start: 20100901, end: 20110101

REACTIONS (5)
  - VISION BLURRED [None]
  - MUSCLE TWITCHING [None]
  - DEPRESSION [None]
  - ENURESIS [None]
  - INCREASED APPETITE [None]
